FAERS Safety Report 7646868-7 (Version None)
Quarter: 2011Q3

REPORT INFORMATION
  Report Type: 
  Country: None (occurrence: None)
  Receive Date: 20110725
  Receipt Date: 20110707
  Transmission Date: 20111222
  Serious: Yes (Other)
  Sender: FDA-Public Use
  Company Number: JHP201100358

PATIENT
  Age: 49 Year
  Sex: Male

DRUGS (18)
  1. SUCCINYLCHOLINE CHLORIDE [Concomitant]
  2. FENTANYL [Concomitant]
  3. DESFLURANE [Concomitant]
  4. ZOFRAN [Concomitant]
  5. MIDAZOLAM HYDROCHLORIDE [Concomitant]
  6. DEXTROSE 5% [Concomitant]
  7. REGLAN [Concomitant]
  8. CALCIUM CHLORIDE [Concomitant]
  9. MANNITOL [Concomitant]
  10. ESMOLOL (ESMOLOL) [Concomitant]
  11. PROPOFOL [Concomitant]
  12. DOPAMINE HCL [Concomitant]
  13. DANTROLENE SODIUM [Suspect]
     Indication: HYPERTHERMIA MALIGNANT
     Dosage: 480 MG, TOTAL, INTRAVENOUS
     Route: 042
  14. ROCURONIUM BROMIDE [Concomitant]
  15. LASIX [Concomitant]
  16. INSULIN [Concomitant]
  17. BICARBONATE (SODIUM BICARBONATE) [Concomitant]
  18. KAYEXALATE [Concomitant]

REACTIONS (6)
  - PULMONARY OEDEMA [None]
  - DISSEMINATED INTRAVASCULAR COAGULATION [None]
  - MUSCULAR WEAKNESS [None]
  - PHLEBITIS [None]
  - RESPIRATORY FAILURE [None]
  - EYE DISORDER [None]
